FAERS Safety Report 6587751-8 (Version None)
Quarter: 2010Q1

REPORT INFORMATION
  Report Type: 
  Country: None (occurrence: None)
  Receive Date: 20100217
  Receipt Date: 20100217
  Transmission Date: 20100710
  Serious: Yes (Life-Threatening, Hospitalization)
  Sender: FDA-Public Use
  Company Number: None

PATIENT
  Age: 69 Year
  Sex: Male

DRUGS (9)
  1. DACOGEN [Suspect]
     Dosage: Q28DAYS IV
     Route: 042
  2. CENTRUM SILVER [Concomitant]
  3. FISH OIL [Concomitant]
  4. FOLVITE [Concomitant]
  5. MIRALAX [Concomitant]
  6. ANZEMET [Concomitant]
  7. TYLENOL-500 [Concomitant]
  8. LASIX [Concomitant]
  9. TENORMIN [Concomitant]

REACTIONS (1)
  - PANCYTOPENIA [None]
